FAERS Safety Report 21306966 (Version 1)
Quarter: 2022Q3

REPORT INFORMATION
  Report Type: Spontaneous
  Country: US (occurrence: US)
  Receive Date: 20220908
  Receipt Date: 20220908
  Transmission Date: 20221027
  Serious: No
  Sender: FDA-Public Use
  Company Number: US-PERRIGO-22US007735

PATIENT
  Age: 30 Year
  Sex: Female
  Weight: 72.562 kg

DRUGS (9)
  1. MINOXIDIL [Suspect]
     Active Substance: MINOXIDIL
     Indication: Alopecia
     Dosage: 0.5 ML, SINGLE HS
     Route: 061
     Dates: start: 20220523, end: 20220523
  2. MINOXIDIL [Suspect]
     Active Substance: MINOXIDIL
     Dosage: 0.5 ML, BID
     Route: 061
     Dates: start: 20220524, end: 20220525
  3. MINOXIDIL [Suspect]
     Active Substance: MINOXIDIL
     Dosage: 0.5 ML, SINGLE IN AM
     Route: 061
     Dates: start: 20220526, end: 20220526
  4. ALLEGRA [Concomitant]
     Active Substance: FEXOFENADINE HYDROCHLORIDE
     Indication: Seasonal allergy
     Dosage: UNK, QAM
     Route: 065
     Dates: start: 2019
  5. ZYRTEC [Concomitant]
     Active Substance: CETIRIZINE HYDROCHLORIDE
     Indication: Seasonal allergy
     Dosage: UNK, QHS
     Route: 065
     Dates: start: 2019
  6. SINGULAIR [Concomitant]
     Active Substance: MONTELUKAST SODIUM
     Indication: Seasonal allergy
     Dosage: UNK, QHS
     Route: 065
     Dates: start: 2019
  7. GIANVI [Concomitant]
     Active Substance: DROSPIRENONE\ETHINYL ESTRADIOL
     Indication: Menstrual disorder
     Dosage: UNK
     Route: 065
     Dates: start: 2007
  8. FIBER [Concomitant]
     Active Substance: PSYLLIUM HUSK
     Indication: Bowel movement irregularity
     Dosage: UNK
     Route: 065
     Dates: start: 2020
  9. VITAMINS [Concomitant]
     Active Substance: VITAMINS
     Indication: Supplementation therapy
     Dosage: UNK
     Route: 065
     Dates: start: 2021

REACTIONS (4)
  - Application site discomfort [Recovering/Resolving]
  - Dizziness [Not Recovered/Not Resolved]
  - Product administered at inappropriate site [Not Recovered/Not Resolved]
  - Off label use [Not Recovered/Not Resolved]

NARRATIVE: CASE EVENT DATE: 20220523
